FAERS Safety Report 5250999-9 (Version None)
Quarter: 2007Q1

REPORT INFORMATION
  Report Type: 
  Country: None (occurrence: None)
  Receive Date: 20070228
  Receipt Date: 20060809
  Transmission Date: 20070707
  Serious: No
  Sender: FDA-Public Use
  Company Number: US-GLAXOSMITHKLINE-A0615774A

PATIENT
  Age: 29 Year
  Sex: Female

DRUGS (4)
  1. LAMICTAL [Suspect]
     Indication: BIPOLAR II DISORDER
     Dosage: 200MG PER DAY
     Route: 048
     Dates: start: 20051025, end: 20060726
  2. AMBIEN [Concomitant]
  3. FOLIC ACID [Concomitant]
  4. PRENATAL VITAMINS [Concomitant]

REACTIONS (2)
  - NORMAL DELIVERY [None]
  - RASH [None]
